FAERS Safety Report 7085134-8 (Version None)
Quarter: 2010Q4

REPORT INFORMATION
  Report Type: 
  Country: None (occurrence: None)
  Receive Date: 20101028
  Receipt Date: 20101022
  Transmission Date: 20110411
  Serious: Yes (Other)
  Sender: FDA-Public Use
  Company Number: A0888318A

PATIENT
  Age: 75 Year
  Sex: Female

DRUGS (11)
  1. MICONAZOLE NITRATE [Suspect]
     Indication: ANTIFUNGAL TREATMENT
     Dosage: VARIABLE DOSE / TOPICAL
     Route: 061
     Dates: start: 20040101, end: 20070101
  2. SIMVASTATIN [Concomitant]
  3. METOPROLOL TARTRATE [Concomitant]
  4. CALCIUM WITH VITAMIN D [Concomitant]
  5. ASCORBIC ACID [Concomitant]
  6. CENTRUM [Concomitant]
  7. ASPIRIN [Concomitant]
  8. CLOPIDOGREL BISULFATE [Concomitant]
  9. OSTEO-BI-FLEX [Concomitant]
  10. MOMETASONE FUROATE [Concomitant]
  11. ALENDRONATE SODIUM [Concomitant]

REACTIONS (1)
  - BREAST CANCER FEMALE [None]
